FAERS Safety Report 6137029-1 (Version None)
Quarter: 2009Q1

REPORT INFORMATION
  Report Type: 
  Country: None (occurrence: None)
  Receive Date: 20090330
  Receipt Date: 20090323
  Transmission Date: 20090719
  Serious: Yes (Hospitalization, Other)
  Sender: FDA-Public Use
  Company Number: US-ELI_LILLY_AND_COMPANY-US200903005745

PATIENT
  Sex: Female

DRUGS (1)
  1. FORTEO [Suspect]
     Dates: start: 20070901, end: 20090320

REACTIONS (4)
  - BLOOD SODIUM DECREASED [None]
  - BRAIN NEOPLASM [None]
  - CYSTITIS [None]
  - UNEVALUABLE EVENT [None]
